FAERS Safety Report 8034302-7 (Version None)
Quarter: 2012Q1

REPORT INFORMATION
  Report Type: 
  Country: None (occurrence: None)
  Receive Date: 20120110
  Receipt Date: 20120104
  Transmission Date: 20120608
  Serious: Yes (Other)
  Sender: FDA-Public Use
  Company Number: PHEH2011US05204

PATIENT
  Sex: Female

DRUGS (6)
  1. LYRICA [Concomitant]
  2. ANTIBIOTICS [Concomitant]
  3. PROTONIX [Concomitant]
  4. AMBIEN [Concomitant]
  5. GILENYA [Suspect]
     Indication: MULTIPLE SCLEROSIS
     Dosage: 0.5 MG, QD
     Route: 048
     Dates: start: 20110824
  6. KEPPRA [Concomitant]

REACTIONS (17)
  - CONFUSIONAL STATE [None]
  - FATIGUE [None]
  - CONVULSION [None]
  - DYSKINESIA [None]
  - URINARY TRACT INFECTION [None]
  - PARTIAL SEIZURES WITH SECONDARY GENERALISATION [None]
  - AMNESIA [None]
  - DYSTONIA [None]
  - LOSS OF CONSCIOUSNESS [None]
  - COGNITIVE DISORDER [None]
  - ASTHENIA [None]
  - MUSCLE SPASMS [None]
  - MULTIPLE SCLEROSIS RELAPSE [None]
  - VISION BLURRED [None]
  - SOMNOLENCE [None]
  - TINNITUS [None]
  - MUSCLE RIGIDITY [None]
